FAERS Safety Report 11873568 (Version 3)
Quarter: 2016Q1

REPORT INFORMATION
  Report Type: Report from Study
  Country: US (occurrence: US)
  Receive Date: 20151228
  Receipt Date: 20160120
  Transmission Date: 20160526
  Serious: No
  Sender: FDA-Public Use
  Company Number: US-AMGEN-USASL2015136833

PATIENT
  Age: 74 Year
  Sex: Female

DRUGS (1)
  1. ENBREL [Suspect]
     Active Substance: ETANERCEPT
     Indication: RHEUMATOID ARTHRITIS
     Dosage: UNK
     Route: 065
     Dates: end: 20160108

REACTIONS (10)
  - Infection [Unknown]
  - Device issue [Unknown]
  - Eyelid oedema [Unknown]
  - Urinary tract infection [Not Recovered/Not Resolved]
  - Erythema of eyelid [Unknown]
  - Injection site irritation [Unknown]
  - Drug dose omission [Unknown]
  - Tendon disorder [Unknown]
  - Feeling abnormal [Unknown]
  - Hypertension [Unknown]
